FAERS Safety Report 14452908 (Version 1)
Quarter: 2018Q1

REPORT INFORMATION
  Report Type: Spontaneous
  Country: GB (occurrence: GB)
  Receive Date: 20180129
  Receipt Date: 20180129
  Transmission Date: 20180509
  Serious: Yes (Other)
  Sender: FDA-Public Use
  Company Number: GB-TEVA-804819ACC

PATIENT
  Age: 47 Year
  Sex: Female
  Weight: 74 kg

DRUGS (11)
  1. FLUTICASONE FUROATE [Concomitant]
     Active Substance: FLUTICASONE FUROATE
     Dosage: 1 DOSAGE FORMS DAILY;
     Dates: start: 20170511
  2. CANAGLIFLOZIN [Concomitant]
     Active Substance: CANAGLIFLOZIN
     Dosage: 1 DOSAGE FORMS DAILY;
     Dates: start: 20170322, end: 20170717
  3. LANSOPRAZOLE. [Concomitant]
     Active Substance: LANSOPRAZOLE
     Dosage: 1 DOSAGE FORMS DAILY;
     Dates: start: 20170526, end: 20170623
  4. AMITRIPTYLINE HYDROCHLORIDE. [Concomitant]
     Active Substance: AMITRIPTYLINE HYDROCHLORIDE
     Indication: MYALGIA
     Dosage: 1 DOSAGE FORMS DAILY;
     Dates: start: 20170719, end: 20170816
  5. METFORMIN [Concomitant]
     Active Substance: METFORMIN HYDROCHLORIDE
     Dosage: 2 DOSAGE FORMS DAILY;
     Dates: start: 20160523
  6. UREA. [Concomitant]
     Active Substance: UREA
     Dosage: AS DIRECTED BY DERMATOLOGIST
     Dates: start: 20160523
  7. NAPROXEN. [Suspect]
     Active Substance: NAPROXEN
     Route: 048
     Dates: start: 20170824, end: 20170824
  8. LEVEMIR [Concomitant]
     Active Substance: INSULIN DETEMIR
     Dosage: AS DIRECTED.
     Dates: start: 20170511
  9. ORLISTAT. [Concomitant]
     Active Substance: ORLISTAT
     Dosage: 3 DOSAGE FORMS DAILY;
     Dates: start: 20170815
  10. ATORVASTATIN [Concomitant]
     Active Substance: ATORVASTATIN
     Dosage: 1 DOSAGE FORMS DAILY;
     Dates: start: 20161116
  11. CETIRIZINE [Concomitant]
     Active Substance: CETIRIZINE HYDROCHLORIDE
     Dosage: 1 DOSAGE FORMS DAILY;
     Dates: start: 20170824

REACTIONS (4)
  - Swelling face [Recovering/Resolving]
  - Pharyngeal oedema [Recovering/Resolving]
  - Lip swelling [Recovering/Resolving]
  - Hypersensitivity [Recovering/Resolving]

NARRATIVE: CASE EVENT DATE: 20170824
